FAERS Safety Report 24613944 (Version 1)
Quarter: 2024Q4

REPORT INFORMATION
  Report Type: Spontaneous
  Country: US (occurrence: None)
  Receive Date: 20241113
  Receipt Date: 20241113
  Transmission Date: 20250115
  Serious: Yes (Hospitalization)
  Sender: Public
  Company Number: None

PATIENT
  Age: 65 Year
  Sex: Female
  Weight: 113.4 kg

DRUGS (1)
  1. PEMBROLIZUMAB [Suspect]
     Active Substance: PEMBROLIZUMAB
     Indication: Renal cell carcinoma
     Dosage: OTHER FREQUENCY : Q6 WEEKS;?
     Route: 042
     Dates: start: 20241001

REACTIONS (5)
  - Fatigue [None]
  - Abdominal pain [None]
  - Nausea [None]
  - Vomiting [None]
  - Hyperglycaemia [None]

NARRATIVE: CASE EVENT DATE: 20241110
